FAERS Safety Report 15424088 (Version 2)
Quarter: 2018Q4

REPORT INFORMATION
  Report Type: Report from Study
  Country: CO (occurrence: CO)
  Receive Date: 20180925
  Receipt Date: 20181026
  Transmission Date: 20190204
  Serious: Yes (Other)
  Sender: FDA-Public Use
  Company Number: PHHY2018CO099864

PATIENT
  Sex: Female
  Weight: 73 kg

DRUGS (1)
  1. TASIGNA [Suspect]
     Active Substance: NILOTINIB
     Indication: CHRONIC MYELOID LEUKAEMIA
     Dosage: 400 MG, QD
     Route: 048

REACTIONS (5)
  - Ill-defined disorder [Unknown]
  - Inappropriate schedule of product administration [Unknown]
  - Vascular pain [Unknown]
  - Aortic disorder [Unknown]
  - Pain in extremity [Recovering/Resolving]
